FAERS Safety Report 13110631 (Version 1)
Quarter: 2017Q1

REPORT INFORMATION
  Report Type: Spontaneous
  Country: SE (occurrence: SE)
  Receive Date: 20170112
  Receipt Date: 20170112
  Transmission Date: 20170428
  Serious: Yes (Hospitalization)
  Sender: FDA-Public Use
  Company Number: SE-TEVA-728178ISR

PATIENT
  Age: 54 Year
  Sex: Female

DRUGS (1)
  1. DICLOFENAC [Suspect]
     Active Substance: DICLOFENAC
     Route: 065

REACTIONS (4)
  - Toxicity to various agents [Unknown]
  - Intentional self-injury [Unknown]
  - Overdose [Unknown]
  - Analgesic drug level increased [Unknown]
